FAERS Safety Report 6496819-6 (Version None)
Quarter: 2009Q4

REPORT INFORMATION
  Report Type: 
  Country: None (occurrence: None)
  Receive Date: 20091125
  Receipt Date: 20090126
  Transmission Date: 20100525
  Serious: Yes (Hospitalization)
  Sender: FDA-Public Use
  Company Number: 2009BH001393

PATIENT
  Age: 79 Year
  Sex: Male

DRUGS (1)
  1. DIANEAL [Suspect]
     Indication: PERITONEAL DIALYSIS
     Dosage: 8 L ; EVERY DAY ; IP
     Route: 033
     Dates: start: 20051114

REACTIONS (2)
  - FLUID OVERLOAD [None]
  - PROCEDURAL PAIN [None]
